FAERS Safety Report 5999695-0 (Version None)
Quarter: 2008Q4

REPORT INFORMATION
  Report Type: 
  Country: None (occurrence: None)
  Receive Date: 20081215
  Receipt Date: 20081204
  Transmission Date: 20090506
  Serious: Yes (Hospitalization)
  Sender: FDA-Public Use
  Company Number: US-AMGEN-US322275

PATIENT
  Sex: Male
  Weight: 83.5 kg

DRUGS (14)
  1. NEULASTA [Suspect]
     Indication: CHEMOTHERAPY
     Route: 065
  2. RITUXAN [Suspect]
     Indication: CHEMOTHERAPY
     Route: 065
     Dates: start: 20060914
  3. CYTOXAN [Suspect]
     Indication: CHEMOTHERAPY
     Route: 065
     Dates: start: 20060914
  4. NOVANTRONE [Suspect]
     Indication: CHEMOTHERAPY
     Route: 065
     Dates: start: 20060914
  5. VINCRISTINE [Suspect]
     Indication: CHEMOTHERAPY
     Route: 065
     Dates: start: 20060914
  6. PREDNISONE TAB [Suspect]
     Indication: CHEMOTHERAPY
     Route: 048
     Dates: start: 20060914
  7. ALLOPURINOL [Concomitant]
     Route: 065
  8. VERAPAMIL [Concomitant]
     Route: 065
  9. SENOKOT [Concomitant]
     Route: 065
  10. PROTONIX [Concomitant]
     Route: 065
  11. MICARDIS [Concomitant]
     Route: 065
  12. IRON SULFATETHIAMIN COMPOUND TAB [Concomitant]
     Route: 065
  13. ASCORBIC ACID [Concomitant]
     Route: 065
  14. MULTI-VITAMINS [Concomitant]
     Route: 065

REACTIONS (4)
  - DYSPNOEA [None]
  - PNEUMONIA [None]
  - PYREXIA [None]
  - TUMOUR LYSIS SYNDROME [None]
